FAERS Safety Report 8205401-1 (Version None)
Quarter: 2012Q1

REPORT INFORMATION
  Report Type: 
  Country: None (occurrence: None)
  Receive Date: 20120313
  Receipt Date: 20120305
  Transmission Date: 20120608
  Serious: Yes (Other)
  Sender: FDA-Public Use
  Company Number: US-US-EMD SERONO, INC.-7117364

PATIENT
  Sex: Female

DRUGS (2)
  1. REBIF [Suspect]
     Indication: PRODUCT USED FOR UNKNOWN INDICATION
     Route: 058
     Dates: start: 20090717
  2. TYLENOL [Concomitant]
     Indication: PREMEDICATION

REACTIONS (2)
  - ENDOMETRIOSIS [None]
  - PRECANCEROUS CELLS PRESENT [None]
